APPROVED DRUG PRODUCT: CLINDAMYCIN PHOSPHATE
Active Ingredient: CLINDAMYCIN PHOSPHATE
Strength: EQ 150MG BASE/ML
Dosage Form/Route: INJECTABLE;INJECTION
Application: A063068 | Product #001
Applicant: HIKMA PHARMACEUTICALS USA INC
Approved: Aug 28, 1989 | RLD: No | RS: No | Type: DISCN